FAERS Safety Report 9938056 (Version 1)
Quarter: 2014Q1

REPORT INFORMATION
  Report Type: Spontaneous
  Country: NL (occurrence: NL)
  Receive Date: 20140303
  Receipt Date: 20140303
  Transmission Date: 20141002
  Serious: Yes (Hospitalization)
  Sender: FDA-Public Use
  Company Number: NL-ACCORD-022132

PATIENT
  Age: 58 Year
  Sex: Female

DRUGS (4)
  1. MYCOPHENOLIC ACID [Suspect]
     Indication: IMMUNOSUPPRESSION
     Dosage: ALSO 1000 MG BID GIVEN BEFORE TRANSPLANTATION
  2. TACROLIMUS [Suspect]
     Indication: IMMUNOSUPPRESSION
     Dosage: ALSO 0.1 MG/KG BID GIVEN BEFORE TRANSPLANTATION
  3. PREDNISONE [Suspect]
     Indication: IMMUNOSUPPRESSION
     Dosage: ALSO 20 MG ONCE DAILY GIVEN BEFORE TRANSPLANTATION
  4. VALGANCICLOVIR/VALGANCICLOVIR HYDROCHLORIDE [Concomitant]
     Indication: ANTIVIRAL PROPHYLAXIS

REACTIONS (5)
  - Pyelonephritis [Unknown]
  - Serratia sepsis [Unknown]
  - Urinary tract infection [Unknown]
  - Pseudomonas infection [Unknown]
  - Transplant rejection [Unknown]
